FAERS Safety Report 8653679 (Version 2)
Quarter: 2012Q4

REPORT INFORMATION
  Report Type: 
  Country: NL (occurrence: NL)
  Receive Date: 20120709
  Receipt Date: 20121122
  Transmission Date: 20130627
  Serious: Yes (Hospitalization, Other)
  Sender: FDA-Public Use
  Company Number: PHHY2012NL057998

PATIENT
  Sex: Male
  Weight: 65 kg

DRUGS (5)
  1. ZOMETA [Suspect]
     Indication: METASTASES TO BONE
     Dosage: 4 mg/100ml, 1x per 28 days
     Dates: start: 2010
  2. ZOMETA [Suspect]
     Dosage: 4 mg/100ml, 1x per 28 days
     Dates: start: 20101122
  3. ZOMETA [Suspect]
     Dosage: 4 mg/100ml, 1x per 28 days
     Dates: start: 20120529
  4. ZOMETA [Suspect]
     Dosage: 4 mg/100ml, 1x per 28 days
     Dates: start: 20120706
  5. PARACETAMOL [Concomitant]
     Dosage: When needed

REACTIONS (7)
  - Neoplasm progression [Not Recovered/Not Resolved]
  - Malignant neoplasm progression [Not Recovered/Not Resolved]
  - Back pain [Recovered/Resolved]
  - Bone neoplasm [Not Recovered/Not Resolved]
  - Metastases to bone [Not Recovered/Not Resolved]
  - Pelvic neoplasm [Not Recovered/Not Resolved]
  - Sensory disturbance [Not Recovered/Not Resolved]
